FAERS Safety Report 6634203-2 (Version None)
Quarter: 2010Q1

REPORT INFORMATION
  Report Type: 
  Country: None (occurrence: None)
  Receive Date: 20100315
  Receipt Date: 20100301
  Transmission Date: 20100710
  Serious: Yes (Hospitalization, Other)
  Sender: FDA-Public Use
  Company Number: PHHY2010DE13034

PATIENT
  Sex: Male

DRUGS (3)
  1. CYCLOSPORINE [Suspect]
     Indication: NEURODERMATITIS
     Dosage: 100 MG PER DAY
     Route: 048
     Dates: start: 20040501, end: 20061001
  2. ELIDEL [Interacting]
     Indication: NEURODERMATITIS
     Dosage: 1 TUBE/QUARTER
     Route: 061
  3. PREDNISOLONE [Interacting]
     Indication: NEURODERMATITIS
     Dosage: INTERMITTENT
     Route: 061

REACTIONS (2)
  - MALIGNANT TUMOUR EXCISION [None]
  - SQUAMOUS CELL CARCINOMA [None]
